FAERS Safety Report 10055823 (Version 1)
Quarter: 2014Q2

REPORT INFORMATION
  Report Type: Spontaneous
  Country: US (occurrence: None)
  Receive Date: 20140402
  Receipt Date: 20140402
  Transmission Date: 20141212
  Serious: Yes (Hospitalization)
  Sender: FDA-Public Use
  Company Number: None

PATIENT
  Age: 74 Year
  Sex: Female

DRUGS (1)
  1. STIVARGA [Suspect]
     Indication: COLON CANCER
     Dosage: STIVARGA 80 MG, DAILY FOR 21 DAYS, OFF, PO
     Route: 048
     Dates: start: 20140127, end: 20140227

REACTIONS (1)
  - Hyperaesthesia [None]
